FAERS Safety Report 8487825-0 (Version None)
Quarter: 2012Q2

REPORT INFORMATION
  Report Type: 
  Country: None (occurrence: None)
  Receive Date: 20120402
  Receipt Date: 20110329
  Transmission Date: 20120825
  Serious: Yes (Other)
  Sender: FDA-Public Use
  Company Number: PHHY2010US89460

PATIENT
  Age: 70 Year
  Sex: Female

DRUGS (2)
  1. EXFORGE [Suspect]
     Dosage: 1 DF
     Dates: start: 20091123
  2. DIURETICS (NO INGREDIENTS/SUBSTANCES) [Concomitant]

REACTIONS (6)
  - DIZZINESS [None]
  - DYSSTASIA [None]
  - FATIGUE [None]
  - HEART RATE INCREASED [None]
  - BLOOD PRESSURE DECREASED [None]
  - ASTHENIA [None]
